FAERS Safety Report 13277743 (Version 3)
Quarter: 2020Q3

REPORT INFORMATION
  Report Type: Report from Study
  Country: IL (occurrence: IL)
  Receive Date: 20170228
  Receipt Date: 20170505
  Transmission Date: 20201104
  Serious: Yes (Life-Threatening, Hospitalization, Other)
  Sender: FDA-Public Use
  Company Number: IL-JNJFOC-20170210792

PATIENT
  Age: 70 Year
  Sex: Female
  Weight: 54 kg

DRUGS (6)
  1. OBINUTUZUMAB. [Suspect]
     Active Substance: OBINUTUZUMAB
     Indication: NODAL MARGINAL ZONE B-CELL LYMPHOMA
     Route: 048
     Dates: start: 20150715, end: 20170206
  2. OBINUTUZUMAB. [Suspect]
     Active Substance: OBINUTUZUMAB
     Indication: CHRONIC LYMPHOCYTIC LEUKAEMIA
     Route: 048
     Dates: start: 20150715, end: 20170206
  3. IBRUTINIB [Suspect]
     Active Substance: IBRUTINIB
     Indication: NODAL MARGINAL ZONE B-CELL LYMPHOMA
     Route: 048
     Dates: start: 20150715, end: 20170206
  4. NYSTATIN. [Concomitant]
     Active Substance: NYSTATIN
     Indication: FUNGAL INFECTION
     Dosage: DROPS EVERY OTHER DAY_ON TONGUE
     Route: 048
     Dates: start: 20161005
  5. VALTREX [Concomitant]
     Active Substance: VALACYCLOVIR HYDROCHLORIDE
     Indication: HERPES VIRUS INFECTION
     Route: 048
     Dates: start: 20161005
  6. IBRUTINIB [Suspect]
     Active Substance: IBRUTINIB
     Indication: CHRONIC LYMPHOCYTIC LEUKAEMIA
     Route: 048
     Dates: start: 20150715, end: 20170206

REACTIONS (2)
  - Streptococcal bacteraemia [Recovered/Resolved]
  - Infective aneurysm [Recovered/Resolved]

NARRATIVE: CASE EVENT DATE: 20170205
